FAERS Safety Report 16406433 (Version 2)
Quarter: 2019Q3

REPORT INFORMATION
  Report Type: Spontaneous
  Country: MX (occurrence: MX)
  Receive Date: 20190607
  Receipt Date: 20190724
  Transmission Date: 20191004
  Serious: Yes (Other)
  Sender: FDA-Public Use
  Company Number: MX-TOPROL ACQUISITION LLC-2019-TOP-000282

PATIENT
  Age: 56 Year
  Sex: Female
  Weight: 110 kg

DRUGS (13)
  1. ATACAND PLUS [Interacting]
     Active Substance: CANDESARTAN CILEXETIL\HYDROCHLOROTHIAZIDE
     Indication: HYPERTENSION
     Dosage: 16/12.5 MG 1 TABLET, QD
     Route: 048
     Dates: start: 20181229
  2. METOPROLOL SUCCINATE. [Interacting]
     Active Substance: METOPROLOL SUCCINATE
     Indication: CARDIAC MURMUR
  3. RYTHMOL [Concomitant]
     Active Substance: PROPAFENONE HYDROCHLORIDE
     Indication: TACHYCARDIA
  4. ATACAND PLUS [Interacting]
     Active Substance: CANDESARTAN CILEXETIL\HYDROCHLOROTHIAZIDE
     Indication: ARRHYTHMIA
     Dosage: 16/12.5 MG 1/2 TABLET, QD
     Route: 048
     Dates: start: 20170528, end: 20181228
  5. ATACAND PLUS [Interacting]
     Active Substance: CANDESARTAN CILEXETIL\HYDROCHLOROTHIAZIDE
     Indication: TACHYCARDIA
  6. RYTHMOL [Concomitant]
     Active Substance: PROPAFENONE HYDROCHLORIDE
     Indication: CARDIAC MURMUR
  7. METOPROLOL SUCCINATE. [Interacting]
     Active Substance: METOPROLOL SUCCINATE
     Indication: TACHYCARDIA
  8. RYTHMOL [Concomitant]
     Active Substance: PROPAFENONE HYDROCHLORIDE
     Indication: ARRHYTHMIA
     Dosage: 150 MG, QD
     Route: 048
     Dates: start: 19940528
  9. RYTHMOL [Concomitant]
     Active Substance: PROPAFENONE HYDROCHLORIDE
     Indication: HYPERTENSION
  10. METOPROLOL SUCCINATE. [Suspect]
     Active Substance: METOPROLOL SUCCINATE
     Indication: ARRHYTHMIA
     Dosage: 47.5 MG, QD
     Route: 048
     Dates: start: 20170528, end: 20181228
  11. METOPROLOL SUCCINATE. [Interacting]
     Active Substance: METOPROLOL SUCCINATE
     Indication: HYPERTENSION
     Dosage: 95 MG, QD
     Route: 048
     Dates: start: 20181229
  12. ATACAND PLUS [Interacting]
     Active Substance: CANDESARTAN CILEXETIL\HYDROCHLOROTHIAZIDE
     Indication: CARDIAC MURMUR
  13. ASPIRINA [Concomitant]
     Active Substance: ASPIRIN
     Indication: MUSCULOSKELETAL DISCOMFORT
     Dosage: UNK, QD
     Route: 048
     Dates: start: 20181229

REACTIONS (5)
  - Medication error [Unknown]
  - Epistaxis [Recovered/Resolved]
  - Angiopathy [Not Recovered/Not Resolved]
  - Therapeutic product effect decreased [Not Recovered/Not Resolved]
  - Weight increased [Not Recovered/Not Resolved]

NARRATIVE: CASE EVENT DATE: 20181228
